FAERS Safety Report 9827471 (Version 1)
Quarter: 2014Q1

REPORT INFORMATION
  Report Type: Spontaneous
  Country: US (occurrence: None)
  Receive Date: 20140116
  Receipt Date: 20140116
  Transmission Date: 20141002
  Serious: No
  Sender: FDA-Public Use
  Company Number: None

PATIENT
  Age: 46 Year
  Sex: Female
  Weight: 63.5 kg

DRUGS (3)
  1. MONISTAT [Suspect]
     Indication: VULVOVAGINAL MYCOTIC INFECTION
     Dosage: 1 OVULE
     Route: 067
     Dates: start: 20140107, end: 20140107
  2. IUD [Concomitant]
  3. MIRENA [Concomitant]

REACTIONS (6)
  - Vulvovaginal pruritus [None]
  - Vulvovaginal swelling [None]
  - Feeling hot [None]
  - Discomfort [None]
  - Pain [None]
  - Condition aggravated [None]
